FAERS Safety Report 16212467 (Version 6)
Quarter: 2020Q3

REPORT INFORMATION
  Report Type: Spontaneous
  Country: US (occurrence: US)
  Receive Date: 20190418
  Receipt Date: 20200813
  Transmission Date: 20201102
  Serious: Yes (Hospitalization)
  Sender: FDA-Public Use
  Company Number: US-PFIZER INC-2019159902

PATIENT
  Age: 73 Year
  Sex: Female

DRUGS (5)
  1. CELECOXIB. [Suspect]
     Active Substance: CELECOXIB
     Indication: ARTHRITIS
     Dosage: 200 MG, 3X/DAY
     Route: 048
     Dates: start: 2018, end: 2019
  2. CELECOXIB. [Suspect]
     Active Substance: CELECOXIB
     Dosage: 400 MG, UNK (LAST 3 YEARS)
  3. CELECOXIB. [Suspect]
     Active Substance: CELECOXIB
     Indication: OSTEOARTHRITIS
     Dosage: UNK (ONE PILL AND THEN I TAKE ANOTHER 2ND DAY AND THE 3RD DAY)
  4. CELECOXIB. [Suspect]
     Active Substance: CELECOXIB
     Dosage: 200 MG, UNK (ABOUT 6 YEARS BEFORE THE REPORT)
     Dates: end: 2019
  5. CELECOXIB. [Suspect]
     Active Substance: CELECOXIB
     Dosage: 200 MG, 1X/DAY

REACTIONS (5)
  - Off label use [Unknown]
  - Illness [Recovered/Resolved]
  - Lactose intolerance [Recovered/Resolved]
  - Reaction to excipient [Recovered/Resolved]
  - Product use issue [Unknown]

NARRATIVE: CASE EVENT DATE: 2018
